FAERS Safety Report 16314944 (Version 4)
Quarter: 2019Q3

REPORT INFORMATION
  Report Type: Spontaneous
  Country: PT (occurrence: PT)
  Receive Date: 20190515
  Receipt Date: 20190920
  Transmission Date: 20191004
  Serious: Yes (Death, Hospitalization, Other)
  Sender: FDA-Public Use
  Company Number: PT-PFIZER INC-2019206832

PATIENT
  Age: 49 Year
  Sex: Female

DRUGS (12)
  1. MEROPENEM. [Suspect]
     Active Substance: MEROPENEM
     Dosage: 2 G, 3X/DAY
     Route: 042
     Dates: start: 2017
  2. COLISTIN [Suspect]
     Active Substance: COLISTIN
     Dosage: 5 MU 12/12H
     Route: 042
     Dates: start: 2017
  3. DOXORUBICIN [Concomitant]
     Active Substance: DOXORUBICIN
     Indication: ACUTE LYMPHOCYTIC LEUKAEMIA
     Dosage: UNK
     Dates: start: 2017
  4. TIGECYCLINE. [Suspect]
     Active Substance: TIGECYCLINE
     Indication: ANTIBIOTIC THERAPY
     Dosage: 200 MG, UNK (200 MG LOADING DOSE)
     Route: 042
  5. COLISTIN [Suspect]
     Active Substance: COLISTIN
     Dosage: 8 MU, LOADING DOSE
     Route: 042
     Dates: start: 2017
  6. CYCLOPHOSPHAMIDE. [Concomitant]
     Active Substance: CYCLOPHOSPHAMIDE
     Indication: ACUTE LYMPHOCYTIC LEUKAEMIA
     Dosage: UNK
     Dates: start: 2017
  7. COLISTIN [Suspect]
     Active Substance: COLISTIN
     Dosage: 4 MU 12/12H
     Route: 042
     Dates: start: 2017
  8. TIGECYCLINE. [Suspect]
     Active Substance: TIGECYCLINE
     Dosage: 100 MG, 2X/DAY
     Route: 042
     Dates: start: 2017
  9. AMIKACIN. [Suspect]
     Active Substance: AMIKACIN
     Indication: ANTIBIOTIC THERAPY
     Dosage: 1 G, 1X/DAY
     Route: 042
     Dates: start: 2017
  10. VINCRISTINE [Concomitant]
     Active Substance: VINCRISTINE
     Indication: ACUTE LYMPHOCYTIC LEUKAEMIA
     Dosage: UNK
     Dates: start: 2017
  11. DEXAMETHASONE. [Concomitant]
     Active Substance: DEXAMETHASONE
     Indication: ACUTE LYMPHOCYTIC LEUKAEMIA
     Dosage: UNK
     Dates: start: 2017
  12. MEROPENEM. [Suspect]
     Active Substance: MEROPENEM
     Indication: ANTIBIOTIC THERAPY
     Dosage: 1 G, 3X/DAY
     Route: 042
     Dates: start: 2017

REACTIONS (6)
  - Osteomyelitis bacterial [Not Recovered/Not Resolved]
  - Klebsiella bacteraemia [Not Recovered/Not Resolved]
  - Multiple organ dysfunction syndrome [Fatal]
  - Drug resistance [Not Recovered/Not Resolved]
  - Klebsiella infection [Not Recovered/Not Resolved]
  - Neutropenic sepsis [Not Recovered/Not Resolved]

NARRATIVE: CASE EVENT DATE: 2017
